FAERS Safety Report 6809787-1 (Version None)
Quarter: 2010Q2

REPORT INFORMATION
  Report Type: 
  Country: None (occurrence: None)
  Receive Date: 20100630
  Receipt Date: 20100621
  Transmission Date: 20101027
  Serious: Yes (Other)
  Sender: FDA-Public Use
  Company Number: ZA-BAYER-201030173GPV

PATIENT
  Age: 50 Year
  Sex: Female

DRUGS (2)
  1. AVELON [Suspect]
     Route: 048
  2. KETEK [Concomitant]
     Route: 048

REACTIONS (1)
  - DEAFNESS NEUROSENSORY [None]
